FAERS Safety Report 19529796 (Version 1)
Quarter: 2021Q3

REPORT INFORMATION
  Report Type: Spontaneous
  Country: US (occurrence: US)
  Receive Date: 20210713
  Receipt Date: 20210713
  Transmission Date: 20211014
  Serious: No
  Sender: FDA-Public Use
  Company Number: US-AZURITY PHARMACEUTICALS, INC.-2021AZY00047

PATIENT
  Sex: Female

DRUGS (1)
  1. KATERZIA [Suspect]
     Active Substance: AMLODIPINE BENZOATE
     Dosage: 2.5 MG, 2 OR 3 X/DAY
     Dates: start: 20210508

REACTIONS (3)
  - Nausea [Unknown]
  - Vomiting [Unknown]
  - Product storage error [Unknown]

NARRATIVE: CASE EVENT DATE: 202105
